FAERS Safety Report 21732632 (Version 1)
Quarter: 2022Q4

REPORT INFORMATION
  Report Type: Spontaneous
  Country: US (occurrence: None)
  Receive Date: 20221215
  Receipt Date: 20221215
  Transmission Date: 20230112
  Serious: Yes (Death, Other)
  Sender: FDA-Public Use
  Company Number: US-ROCHE-3243008

PATIENT
  Sex: Female

DRUGS (1)
  1. AVASTIN [Suspect]
     Active Substance: BEVACIZUMAB
     Indication: Macular degeneration
     Dosage: ONGOING NO
     Route: 050

REACTIONS (4)
  - Off label use [Unknown]
  - Retinal tear [Unknown]
  - Blindness [Unknown]
  - Death [Fatal]
